FAERS Safety Report 8961529 (Version 1)
Quarter: 2012Q4

REPORT INFORMATION
  Report Type: 
  Country: CN (occurrence: CN)
  Receive Date: 20121213
  Receipt Date: 20121213
  Transmission Date: 20130627
  Serious: Yes (Other)
  Sender: FDA-Public Use
  Company Number: CN-ABBOTT-12P-035-1019224-00

PATIENT
  Age: 50 Year
  Sex: Male

DRUGS (2)
  1. DEPAKINE CHRONO [Suspect]
     Indication: EPILEPSY
     Dosage: extended release
     Route: 048
     Dates: start: 20121105, end: 20121108
  2. DEPAKINE CHRONO [Suspect]
     Dosage: extended release
     Route: 048
     Dates: start: 20121109

REACTIONS (5)
  - Gastric dilatation [Not Recovered/Not Resolved]
  - Epilepsy [Recovered/Resolved]
  - Fall [Recovered/Resolved]
  - Muscle spasms [Recovered/Resolved]
  - Foaming at mouth [Recovered/Resolved]
